FAERS Safety Report 15607166 (Version 2)
Quarter: 2018Q4

REPORT INFORMATION
  Report Type: Spontaneous
  Country: US (occurrence: US)
  Receive Date: 20181112
  Receipt Date: 20181119
  Transmission Date: 20190205
  Serious: Yes (Hospitalization)
  Sender: FDA-Public Use
  Company Number: US-HORIZON-PRO-0220-2018

PATIENT
  Age: 7 Year
  Sex: Female

DRUGS (4)
  1. LEVOTHYROXINE. [Concomitant]
     Active Substance: LEVOTHYROXINE
  2. LEVOCARNITINE. [Concomitant]
     Active Substance: LEVOCARNITINE
  3. POTASSIUM [Concomitant]
     Active Substance: POTASSIUM
  4. PROCYSBI [Suspect]
     Active Substance: CYSTEAMINE BITARTRATE
     Indication: CYSTINOSIS
     Dosage: 450 MG BID
     Route: 048
     Dates: start: 201310

REACTIONS (1)
  - Arnold-Chiari malformation [Unknown]
